FAERS Safety Report 10332465 (Version 1)
Quarter: 2014Q3

REPORT INFORMATION
  Report Type: Spontaneous
  Country: US (occurrence: US)
  Receive Date: 20140722
  Receipt Date: 20140722
  Transmission Date: 20150326
  Serious: No
  Sender: FDA-Public Use
  Company Number: US-ASTRAZENECA-2013SE69022

PATIENT
  Sex: Female

DRUGS (2)
  1. ZATIDOR [Concomitant]
     Indication: HYPERSENSITIVITY
     Route: 050
  2. SEROQUEL [Suspect]
     Active Substance: QUETIAPINE FUMARATE
     Indication: SLEEP DISORDER
     Route: 048
     Dates: start: 20130710

REACTIONS (4)
  - Off label use [Unknown]
  - Multiple allergies [Unknown]
  - Ocular hyperaemia [Unknown]
  - Somnolence [Unknown]

NARRATIVE: CASE EVENT DATE: 20130910
